FAERS Safety Report 19501647 (Version 2)
Quarter: 2021Q3

REPORT INFORMATION
  Report Type: Spontaneous
  Country: US (occurrence: US)
  Receive Date: 20210707
  Receipt Date: 20210804
  Transmission Date: 20211014
  Serious: No
  Sender: FDA-Public Use
  Company Number: US-TEVA-2021-US-1930680

PATIENT
  Sex: Female

DRUGS (1)
  1. ATENOLOL. [Suspect]
     Active Substance: ATENOLOL
     Route: 065

REACTIONS (5)
  - Nausea [Unknown]
  - Peripheral coldness [Unknown]
  - Rash [Unknown]
  - Vision blurred [Unknown]
  - Feeling abnormal [Unknown]
